FAERS Safety Report 4485603-0 (Version None)
Quarter: 2004Q4

REPORT INFORMATION
  Report Type: 
  Country: None (occurrence: None)
  Receive Date: 20041026
  Receipt Date: 20041011
  Transmission Date: 20050328
  Serious: Yes (Hospitalization)
  Sender: FDA-Public Use
  Company Number: AU-MERCK-0410AUS00125

PATIENT
  Age: 65 Year
  Sex: Female

DRUGS (3)
  1. VIOXX [Suspect]
     Indication: ARTHRITIS
     Route: 048
     Dates: start: 20040901, end: 20041002
  2. VOLTAREN [Concomitant]
     Route: 065
     Dates: end: 20040801
  3. VOLTAREN [Concomitant]
     Route: 065
     Dates: end: 20040801

REACTIONS (2)
  - ASTHENIA [None]
  - PAIN [None]
